FAERS Safety Report 5622183-8 (Version None)
Quarter: 2008Q1

REPORT INFORMATION
  Report Type: 
  Country: None (occurrence: None)
  Receive Date: 20080206
  Receipt Date: 20080130
  Transmission Date: 20080703
  Serious: Yes (Other)
  Sender: FDA-Public Use
  Company Number: THQ2008A00338

PATIENT
  Age: 76 Year
  Sex: Male

DRUGS (5)
  1. ACTOS [Suspect]
     Indication: DIABETES MELLITUS
     Dosage: 30 MG (30 MG, 1 IN 1 D)
     Route: 048
     Dates: start: 20071216, end: 20080103
  2. ACTOS [Suspect]
     Indication: DIABETES MELLITUS
     Dosage: 30 MG (30 MG, 1 IN 1 D)
     Route: 048
  3. METFORMINE HCL PCH TABLET 1000 MG (METFORMIN) [Concomitant]
  4. ALLOPURINOLUM TABLET 300 MG (ALLOPURINOL) [Concomitant]
  5. LEVOTHYROXINE CHRISTIAENS TABLET [Concomitant]

REACTIONS (1)
  - THROMBOSIS [None]
